FAERS Safety Report 18742027 (Version 2)
Quarter: 2021Q1

REPORT INFORMATION
  Report Type: Spontaneous
  Country: US (occurrence: US)
  Receive Date: 20210114
  Receipt Date: 20210120
  Transmission Date: 20210419
  Serious: Yes (Death, Other)
  Sender: FDA-Public Use
  Company Number: US-PFIZER INC-2021020771

PATIENT
  Age: 23 Year
  Sex: Female

DRUGS (6)
  1. PROPOFOL. [Concomitant]
     Active Substance: PROPOFOL
     Indication: GENERAL ANAESTHESIA
     Dosage: 50 MG
  2. NITROUS OXIDE. [Concomitant]
     Active Substance: NITROUS OXIDE
     Dosage: 50 % (MAINTENANCE)
  3. ALFENTANIL. [Concomitant]
     Active Substance: ALFENTANIL
     Indication: GENERAL ANAESTHESIA
     Dosage: 2 MG
  4. ATROPINE. [Concomitant]
     Active Substance: ATROPINE
     Indication: PREMEDICATION
     Dosage: 0.5 MG
     Route: 030
  5. DROPERIDOL. [Suspect]
     Active Substance: DROPERIDOL
     Indication: GENERAL ANAESTHESIA
     Dosage: 2 MG
     Route: 042
  6. MIDAZOLAM. [Concomitant]
     Active Substance: MIDAZOLAM
     Indication: PREMEDICATION
     Dosage: 5 MG
     Route: 030

REACTIONS (2)
  - Cardiac arrest [Fatal]
  - Off label use [Unknown]
